FAERS Safety Report 5915568-3 (Version None)
Quarter: 2008Q4

REPORT INFORMATION
  Report Type: 
  Country: None (occurrence: None)
  Receive Date: 20081010
  Receipt Date: 20080820
  Transmission Date: 20090506
  Serious: No
  Sender: FDA-Public Use
  Company Number: A0743542A

PATIENT
  Age: 53 Year
  Sex: Female

DRUGS (21)
  1. TYKERB [Suspect]
     Indication: BREAST CANCER
     Dosage: 5TAB PER DAY
     Route: 048
     Dates: start: 20080801
  2. XELODA [Concomitant]
  3. PEPCID [Concomitant]
  4. UNKNOWN MEDICATION [Concomitant]
  5. DILAUDID [Concomitant]
  6. ATIVAN [Concomitant]
  7. RIMATIL [Concomitant]
  8. PROBIOTIC [Concomitant]
  9. ANTIOXIDANT [Concomitant]
  10. CALCIUM [Concomitant]
  11. GLUCOSAMINE [Concomitant]
  12. CHONDROITIN [Concomitant]
  13. MSM [Concomitant]
  14. CENTRUM SILVER [Concomitant]
  15. LOVAZA [Concomitant]
  16. VITAMINS [Concomitant]
  17. COQ10 [Concomitant]
  18. GRAPE SEED EXTRACT [Concomitant]
  19. ACIDOPHILUS [Concomitant]
  20. SELENIUM [Concomitant]
  21. SPIRALINA [Concomitant]

REACTIONS (4)
  - ABDOMINAL PAIN UPPER [None]
  - ERUCTATION [None]
  - FLATULENCE [None]
  - GASTROOESOPHAGEAL REFLUX DISEASE [None]
